FAERS Safety Report 20643871 (Version 1)
Quarter: 2022Q1

REPORT INFORMATION
  Report Type: Spontaneous
  Country: TW (occurrence: TW)
  Receive Date: 20220328
  Receipt Date: 20220328
  Transmission Date: 20220424
  Serious: Yes (Other)
  Sender: FDA-Public Use
  Company Number: TW-LUPIN PHARMACEUTICALS INC.-2022-04270

PATIENT
  Age: 38 Year
  Sex: Female

DRUGS (20)
  1. METHYLPREDNISOLONE [Suspect]
     Active Substance: METHYLPREDNISOLONE
     Indication: T-cell lymphoma stage II
     Dosage: UNK (ESHAP REGIMEN)
     Route: 065
  2. METHOTREXATE [Suspect]
     Active Substance: METHOTREXATE
     Indication: T-cell lymphoma stage II
     Dosage: UNK (GRAALL 2003 REGIMEN)
     Route: 065
  3. CYTARABINE [Suspect]
     Active Substance: CYTARABINE
     Indication: T-cell lymphoma stage II
     Dosage: UNK (GRAALL 2003 REGIMEN)
     Route: 065
  4. CYTARABINE [Suspect]
     Active Substance: CYTARABINE
     Dosage: UNK (ESHAP REGIMEN)
     Route: 065
  5. IFOSFAMIDE [Suspect]
     Active Substance: IFOSFAMIDE
     Indication: T-cell lymphoma stage II
     Dosage: UNK (ICE REGIMEN)
     Route: 065
  6. CARBOPLATIN [Suspect]
     Active Substance: CARBOPLATIN
     Indication: T-cell lymphoma stage II
     Dosage: UNK (ICE REGIMEN)
     Route: 065
  7. ETOPOSIDE [Suspect]
     Active Substance: ETOPOSIDE
     Indication: T-cell lymphoma stage II
     Dosage: UNK (GRAALL 2003 REGIMEN)
     Route: 065
  8. ETOPOSIDE [Suspect]
     Active Substance: ETOPOSIDE
     Dosage: UNK (ICE REGIMEN)
     Route: 065
  9. ETOPOSIDE [Suspect]
     Active Substance: ETOPOSIDE
     Dosage: UNK (ESHAP REGIMEN)
     Route: 065
  10. CISPLATIN [Suspect]
     Active Substance: CISPLATIN
     Indication: T-cell lymphoma stage II
     Dosage: UNK(ESHAP REGIMEN)
     Route: 065
  11. CYCLOPHOSPHAMIDE [Concomitant]
     Active Substance: CYCLOPHOSPHAMIDE
     Indication: T-cell lymphoma stage II
     Dosage: UNK (GRAALL 2003 REGIMEN)
     Route: 065
  12. DAUNORUBICIN [Concomitant]
     Active Substance: DAUNORUBICIN
     Indication: T-cell lymphoma stage II
     Dosage: UNK (GRAALL 2003 REGIMEN)
     Route: 065
  13. VINCRISTINE [Concomitant]
     Active Substance: VINCRISTINE
     Indication: T-cell lymphoma stage II
     Dosage: UNK (GRAALL 2003 REGIMEN)
     Route: 065
  14. IDARUBICIN [Concomitant]
     Active Substance: IDARUBICIN
     Indication: T-cell lymphoma stage II
     Dosage: UNK (GRAALL 2003 REGIMEN)
     Route: 065
  15. IDARUBICIN [Concomitant]
     Active Substance: IDARUBICIN
     Dosage: UNK (ESHAP REGIMEN)
     Route: 065
  16. DEXAMETHASONE [Concomitant]
     Active Substance: DEXAMETHASONE
     Indication: T-cell lymphoma stage II
     Dosage: UNK (GRAALL 2003 REGIMEN)
     Route: 065
  17. MERCAPTOPURINE [Concomitant]
     Active Substance: MERCAPTOPURINE
     Indication: T-cell lymphoma stage II
     Dosage: UNK (GRAALL 2003 REGIMEN)
     Route: 065
  18. LENOGRASTIM [Concomitant]
     Active Substance: LENOGRASTIM
     Indication: T-cell lymphoma stage II
     Dosage: UNK (GRAALL 2003 REGIMEN)
     Route: 065
  19. ASPARAGINASE [Concomitant]
     Active Substance: ASPARAGINASE
     Indication: T-cell lymphoma stage II
     Dosage: UNK (GRAALL 2003 REGIMEN)
     Route: 065
  20. PREDNISONE [Concomitant]
     Active Substance: PREDNISONE
     Indication: T-cell lymphoma stage II
     Dosage: UNK (GRAALL 2003 REGIMEN)
     Route: 065

REACTIONS (1)
  - Drug ineffective [Unknown]
